FAERS Safety Report 5128869-6 (Version None)
Quarter: 2006Q4

REPORT INFORMATION
  Report Type: 
  Country: None (occurrence: None)
  Receive Date: 20061017
  Receipt Date: 20060517
  Transmission Date: 20070319
  Serious: No
  Sender: FDA-Public Use
  Company Number: US-GLAXOSMITHKLINE-A0606065A

PATIENT
  Age: 51 Year
  Sex: Female

DRUGS (3)
  1. CEFTIN [Suspect]
     Dosage: 250MG TWICE PER DAY
     Route: 048
     Dates: start: 20060515
  2. CEFUROXIME AXETIL [Suspect]
     Dosage: 250MG TWICE PER DAY
     Dates: start: 20050401
  3. SYNTHROID [Concomitant]

REACTIONS (3)
  - DRUG INEFFECTIVE [None]
  - EYE PRURITUS [None]
  - NAUSEA [None]
